FAERS Safety Report 12514034 (Version 2)
Quarter: 2016Q3

REPORT INFORMATION
  Report Type: Spontaneous
  Country: US (occurrence: US)
  Receive Date: 20160630
  Receipt Date: 20160912
  Transmission Date: 20161109
  Serious: Yes (Hospitalization)
  Sender: FDA-Public Use
  Company Number: US-JNJFOC-20160527934

PATIENT
  Age: 62 Year
  Sex: Female

DRUGS (5)
  1. XARELTO [Suspect]
     Active Substance: RIVAROXABAN
     Indication: ANTICOAGULANT THERAPY
     Route: 048
     Dates: start: 20130206, end: 20141106
  2. XARELTO [Suspect]
     Active Substance: RIVAROXABAN
     Indication: SUBCLAVIAN ARTERY THROMBOSIS
     Route: 048
     Dates: end: 20150415
  3. XARELTO [Suspect]
     Active Substance: RIVAROXABAN
     Indication: SUBCLAVIAN ARTERY THROMBOSIS
     Route: 048
     Dates: start: 20130206, end: 20141106
  4. XARELTO [Suspect]
     Active Substance: RIVAROXABAN
     Indication: ANTICOAGULANT THERAPY
     Route: 048
     Dates: end: 20150415
  5. ASPIRIN. [Suspect]
     Active Substance: ASPIRIN
     Indication: SUBCLAVIAN ARTERY THROMBOSIS
     Route: 048
     Dates: end: 20141106

REACTIONS (1)
  - Upper gastrointestinal haemorrhage [Recovering/Resolving]

NARRATIVE: CASE EVENT DATE: 201411
